FAERS Safety Report 5915528-2 (Version None)
Quarter: 2008Q4

REPORT INFORMATION
  Report Type: 
  Country: None (occurrence: None)
  Receive Date: 20081010
  Receipt Date: 20080627
  Transmission Date: 20090506
  Serious: No
  Sender: FDA-Public Use
  Company Number: A0735167A

PATIENT
  Age: 74 Year
  Sex: Female

DRUGS (5)
  1. TYKERB [Suspect]
     Indication: BREAST CANCER
     Dosage: 1250MG PER DAY
     Route: 065
     Dates: start: 20080602
  2. HUMULIN INSULIN [Concomitant]
  3. METFORMIN HCL [Concomitant]
  4. ATENOLOL [Concomitant]
  5. LIPITOR [Concomitant]

REACTIONS (4)
  - ANOREXIA [None]
  - BACK PAIN [None]
  - DIARRHOEA [None]
  - URINE ABNORMALITY [None]
